FAERS Safety Report 16570307 (Version 2)
Quarter: 2019Q3

REPORT INFORMATION
  Report Type: Spontaneous
  Country: JP (occurrence: JP)
  Receive Date: 20190715
  Receipt Date: 20190831
  Transmission Date: 20191004
  Serious: Yes (Other)
  Sender: FDA-Public Use
  Company Number: JP-USP-000001

PATIENT
  Age: 64 Year

DRUGS (3)
  1. ERGOMETRINE [Concomitant]
     Active Substance: ERGONOVINE MALEATE
     Indication: PRODUCT USED FOR UNKNOWN INDICATION
     Route: 065
  2. NITROGLYCERIN. [Suspect]
     Active Substance: NITROGLYCERIN
     Indication: PRINZMETAL ANGINA
     Route: 022
  3. ACETYLCHOLINE [Suspect]
     Active Substance: ACETYLCHOLINE CHLORIDE
     Indication: PRINZMETAL ANGINA
     Route: 022

REACTIONS (1)
  - Myocardial ischaemia [Unknown]
